FAERS Safety Report 6486704-8 (Version None)
Quarter: 2009Q4

REPORT INFORMATION
  Report Type: 
  Country: None (occurrence: None)
  Receive Date: 20091209
  Receipt Date: 20091209
  Transmission Date: 20100525
  Serious: Yes (Hospitalization)
  Sender: FDA-Public Use
  Company Number: None

PATIENT
  Sex: Female
  Weight: 88.2 kg

DRUGS (2)
  1. CISPLATIN [Suspect]
     Dosage: 147 MG
     Dates: start: 20091102
  2. ALIMTA [Suspect]
     Dosage: 980 MG
     Dates: start: 20091102

REACTIONS (10)
  - BACTERIAL TEST POSITIVE [None]
  - CANDIDIASIS [None]
  - CHEST PAIN [None]
  - CHILLS [None]
  - CLOSTRIDIAL INFECTION [None]
  - DYSPNOEA [None]
  - OESOPHAGITIS [None]
  - PANCYTOPENIA [None]
  - PLATELET COUNT DECREASED [None]
  - PYREXIA [None]
